FAERS Safety Report 19723137 (Version 1)
Quarter: 2021Q3

REPORT INFORMATION
  Report Type: Report from Study
  Country: US (occurrence: US)
  Receive Date: 20210820
  Receipt Date: 20210820
  Transmission Date: 20211014
  Serious: No
  Sender: FDA-Public Use
  Company Number: US-ACADIA PHARMACEUTICALS INC.-ACA-2021-PIM-002787

PATIENT
  Sex: Male

DRUGS (22)
  1. BUPROPION HCL [Concomitant]
     Active Substance: BUPROPION HYDROCHLORIDE
  2. METFORMIN [Concomitant]
     Active Substance: METFORMIN HYDROCHLORIDE
  3. TAMSULOSIN [Concomitant]
     Active Substance: TAMSULOSIN
  4. BACLOFEN. [Concomitant]
     Active Substance: BACLOFEN
  5. CLONAZEPAM. [Concomitant]
     Active Substance: CLONAZEPAM
  6. GABAPENTINE [Concomitant]
     Active Substance: GABAPENTIN
  7. SIMVASTATIN. [Concomitant]
     Active Substance: SIMVASTATIN
  8. TOUJEO MAX [Concomitant]
     Active Substance: INSULIN GLARGINE
  9. NUPLAZID [Suspect]
     Active Substance: PIMAVANSERIN TARTRATE
     Indication: PARKINSON^S DISEASE
     Dosage: 34 MILLIGRAM, QD
     Route: 048
     Dates: start: 20181225
  10. DULOXETINE. [Concomitant]
     Active Substance: DULOXETINE
  11. HUMALOG HD KWIKPEN [Concomitant]
  12. AMANTADINE. [Concomitant]
     Active Substance: AMANTADINE HYDROCHLORIDE
  13. FREESTYLE [Concomitant]
  14. ROPINIROLE. [Concomitant]
     Active Substance: ROPINIROLE
  15. TESTOSTERONE CYPIONATE. [Concomitant]
     Active Substance: TESTOSTERONE CYPIONATE
  16. LORAZEPAM. [Concomitant]
     Active Substance: LORAZEPAM
  17. METOPROLOL. [Concomitant]
     Active Substance: METOPROLOL
  18. OXYBUTYNIN. [Concomitant]
     Active Substance: OXYBUTYNIN CHLORIDE
  19. BD HYPO NEEDLE MIS [Concomitant]
  20. OMEPRAZOLE. [Concomitant]
     Active Substance: OMEPRAZOLE
  21. QUETIAPINE. [Concomitant]
     Active Substance: QUETIAPINE
  22. RYTARY [Concomitant]
     Active Substance: CARBIDOPA\LEVODOPA

REACTIONS (1)
  - Condition aggravated [Not Recovered/Not Resolved]
